FAERS Safety Report 12148047 (Version 3)
Quarter: 2016Q1

REPORT INFORMATION
  Report Type: Spontaneous
  Country: JP (occurrence: JP)
  Receive Date: 20160304
  Receipt Date: 20160315
  Transmission Date: 20160526
  Serious: Yes (Other)
  Sender: FDA-Public Use
  Company Number: JP-PFIZER INC-2016136541

PATIENT
  Age: 80 Year
  Sex: Male

DRUGS (1)
  1. LYRICA [Suspect]
     Active Substance: PREGABALIN
     Dosage: 25 MG, 1X/DAY
     Route: 048

REACTIONS (6)
  - Therapeutic response unexpected [Unknown]
  - Proctalgia [Unknown]
  - Pre-existing condition improved [Unknown]
  - Extra dose administered [Unknown]
  - Mental impairment [Unknown]
  - Dizziness postural [Unknown]
